FAERS Safety Report 4312404-6 (Version None)
Quarter: 2004Q1

REPORT INFORMATION
  Report Type: 
  Country: None (occurrence: None)
  Receive Date: 20040303
  Receipt Date: 20040226
  Transmission Date: 20041129
  Serious: Yes (Death, Hospitalization)
  Sender: FDA-Public Use
  Company Number: 200410101BFR

PATIENT
  Age: 82 Year
  Sex: Female

DRUGS (13)
  1. MOXIFLOXACIN HCL [Suspect]
     Indication: BRONCHOPNEUMONIA
     Dosage: 400 MG, TOTAL DAILY, ORAL
     Route: 048
     Dates: start: 20040217
  2. MOXIFLOXACIN HCL [Suspect]
     Indication: PURULENCE
     Dosage: 400 MG, TOTAL DAILY, ORAL
     Route: 048
     Dates: start: 20040217
  3. ZECLAR [Concomitant]
  4. MODOPAR [Concomitant]
  5. COMTAN [Concomitant]
  6. ACETAMINOPHEN [Concomitant]
  7. FOSAMAX [Concomitant]
  8. FIXICAL VITAMINE D3 [Concomitant]
  9. BRONCHOKOD [Concomitant]
  10. CELESTENE [Concomitant]
  11. ASPIRIN [Concomitant]
  12. CONTRAMAL [Concomitant]
  13. KETOPROFEN [Concomitant]

REACTIONS (9)
  - CARDIAC ARREST [None]
  - CARDIOVASCULAR DISORDER [None]
  - CIRCULATORY COLLAPSE [None]
  - COLD AGGLUTININS POSITIVE [None]
  - CONDITION AGGRAVATED [None]
  - HAEMOLYTIC ANAEMIA [None]
  - HYPOXIA [None]
  - LEUKOCYTOSIS [None]
  - RESPIRATORY DISORDER [None]
